FAERS Safety Report 4648332-6 (Version None)
Quarter: 2005Q2

REPORT INFORMATION
  Report Type: 
  Country: None (occurrence: None)
  Receive Date: 20050426
  Receipt Date: 20050426
  Transmission Date: 20051028
  Serious: Yes (Other)
  Sender: FDA-Public Use
  Company Number: None

PATIENT
  Sex: Female
  Weight: 68.0396 kg

DRUGS (1)
  1. TEGRETOL [Suspect]
     Indication: COMPLEX PARTIAL SEIZURES
     Dosage: 200 MG QID

REACTIONS (1)
  - NO ADVERSE DRUG EFFECT [None]
